FAERS Safety Report 22313874 (Version 2)
Quarter: 2023Q2

REPORT INFORMATION
  Report Type: Spontaneous
  Country: US (occurrence: US)
  Receive Date: 20230512
  Receipt Date: 20230516
  Transmission Date: 20230722
  Serious: Yes (Life-Threatening, Hospitalization, Other)
  Sender: FDA-Public Use
  Company Number: US-PFIZER INC-PV202300083787

PATIENT
  Age: 5 Decade
  Sex: Female

DRUGS (9)
  1. CYTARABINE [Suspect]
     Active Substance: CYTARABINE
     Indication: Acute myeloid leukaemia
     Dosage: 7+3 INDUCTION REGIMEN
  2. CYTARABINE [Suspect]
     Active Substance: CYTARABINE
     Indication: FLT3 gene mutation
  3. CYTARABINE [Suspect]
     Active Substance: CYTARABINE
     Indication: Tyrosine kinase mutation
  4. DAUNORUBICIN [Suspect]
     Active Substance: DAUNORUBICIN
     Indication: Acute myeloid leukaemia
     Dosage: 7+3 INDUCTION REGIMEN
  5. DAUNORUBICIN [Suspect]
     Active Substance: DAUNORUBICIN
     Indication: FLT3 gene mutation
  6. DAUNORUBICIN [Suspect]
     Active Substance: DAUNORUBICIN
     Indication: Tyrosine kinase mutation
  7. MIDOSTAURIN [Suspect]
     Active Substance: MIDOSTAURIN
     Indication: Acute myeloid leukaemia
     Dosage: 7+3 INDUCTION REGIMEN
  8. MIDOSTAURIN [Suspect]
     Active Substance: MIDOSTAURIN
     Indication: FLT3 gene mutation
  9. MIDOSTAURIN [Suspect]
     Active Substance: MIDOSTAURIN
     Indication: Tyrosine kinase mutation

REACTIONS (1)
  - Stress cardiomyopathy [Recovering/Resolving]
